FAERS Safety Report 16999573 (Version 1)
Quarter: 2019Q4

REPORT INFORMATION
  Report Type: Spontaneous
  Country: DE (occurrence: DE)
  Receive Date: 20191105
  Receipt Date: 20191105
  Transmission Date: 20200122
  Serious: Yes (Congenital Anomaly, Other)
  Sender: FDA-Public Use
  Company Number: DE-BAXTER-2019BAX022118

PATIENT
  Sex: Male

DRUGS (7)
  1. CYCLOPHOSPHAMIDE. [Suspect]
     Active Substance: CYCLOPHOSPHAMIDE
     Indication: HODGKIN^S DISEASE
     Dosage: THE SUSPECT MEDICATION WAS TAKEN BY THE FATHER
     Route: 050
     Dates: end: 201207
  2. NATULAN [Suspect]
     Active Substance: PROCARBAZINE HYDROCHLORIDE
     Indication: HODGKIN^S DISEASE
     Dosage: THE SUSPECT MEDICATION WAS TAKEN BY THE FATHER
     Route: 050
  3. ETOPOSID [Suspect]
     Active Substance: ETOPOSIDE
     Indication: HODGKIN^S DISEASE
     Dosage: THE SUSPECT MEDICATION WAS TAKEN BY THE FATHER
     Route: 050
     Dates: end: 201207
  4. DOXIL [Suspect]
     Active Substance: DOXORUBICIN HYDROCHLORIDE
     Indication: HODGKIN^S DISEASE
     Dosage: THE SUSPECT MEDICATION WAS TAKEN BY THE FATHER
     Route: 050
  5. VINCRISTIN [Suspect]
     Active Substance: VINCRISTINE
     Indication: HODGKIN^S DISEASE
     Dosage: THE SUSPECT MEDICATION WAS TAKEN BY THE FATHER
     Route: 050
  6. PREDNISOLONE. [Suspect]
     Active Substance: PREDNISOLONE
     Indication: HODGKIN^S DISEASE
     Dosage: THE SUSPECT MEDICATION WAS TAKEN BY THE FATHER
     Route: 050
  7. BLEOMYCIN [Suspect]
     Active Substance: BLEOMYCIN SULFATE
     Indication: HODGKIN^S DISEASE
     Dosage: THE SUSPECT MEDICATION WAS TAKEN BY THE FATHER
     Route: 050

REACTIONS (2)
  - Heart disease congenital [Not Recovered/Not Resolved]
  - Foetal exposure during pregnancy [Recovered/Resolved]

NARRATIVE: CASE EVENT DATE: 20150220
